FAERS Safety Report 5012758-1 (Version None)
Quarter: 2006Q2

REPORT INFORMATION
  Report Type: 
  Country: None (occurrence: None)
  Receive Date: 20060530
  Receipt Date: 20060202
  Transmission Date: 20061013
  Serious: Yes (Other)
  Sender: FDA-Public Use
  Company Number: US-BRISTOL-MYERS SQUIBB COMPANY-13270012

PATIENT
  Age: 55 Year
  Sex: Male
  Weight: 83 kg

DRUGS (6)
  1. ERBITUX [Suspect]
     Indication: COLON CANCER METASTATIC
     Route: 042
     Dates: start: 20050106, end: 20060106
  2. BENADRYL [Concomitant]
     Indication: PREMEDICATION
     Route: 042
  3. FENTANYL [Concomitant]
  4. FLUOROURACIL [Concomitant]
  5. LEUCOVORIN [Concomitant]
  6. LORTAB [Concomitant]

REACTIONS (1)
  - BLOOD MAGNESIUM DECREASED [None]
